FAERS Safety Report 19057358 (Version 11)
Quarter: 2024Q1

REPORT INFORMATION
  Report Type: Spontaneous
  Country: IN (occurrence: IN)
  Receive Date: 20210325
  Receipt Date: 20240229
  Transmission Date: 20240410
  Serious: Yes (Death, Hospitalization, Other)
  Sender: FDA-Public Use
  Company Number: IN-PFIZER INC-2021304675

PATIENT
  Age: 59 Year
  Sex: Female
  Weight: 68 kg

DRUGS (11)
  1. LORLATINIB [Suspect]
     Active Substance: LORLATINIB
     Indication: Non-small cell lung cancer
     Dosage: 100 MG, 1X/DAY
     Route: 048
     Dates: start: 20200903
  2. LORLATINIB [Suspect]
     Active Substance: LORLATINIB
     Indication: Small cell carcinoma
     Dosage: 100 MG, 1X/DAY
     Route: 048
     Dates: start: 20210316
  3. NIFTRAN [Concomitant]
     Dosage: 100 MG, 1X/DAY
  4. FERROUS ASCORBATE/FOLIC ACID [Concomitant]
     Dosage: UNK, 1X/DAY
  5. ROSUVASTATIN [Concomitant]
     Active Substance: ROSUVASTATIN
     Dosage: 5 MG, 1X/DAY
  6. DONEP [Concomitant]
     Dosage: UNK, 2X/DAY
  7. ADMENTA [Concomitant]
     Dosage: UNK, 2X/DAY
  8. QUETIAPINE [Concomitant]
     Active Substance: QUETIAPINE
     Dosage: 25 MG, 1X/DAY AT BEDTIME
  9. MITO [Concomitant]
     Dosage: UNK, 1X/DAY
  10. CARNOSINE [Concomitant]
     Active Substance: CARNOSINE
     Dosage: UNK, 2X/DAY
  11. CALCIUM CARBONATE\CHOLECALCIFEROL [Concomitant]
     Active Substance: CALCIUM CARBONATE\CHOLECALCIFEROL

REACTIONS (27)
  - Oxygen saturation decreased [Fatal]
  - Bacterial infection [Unknown]
  - Pyrexia [Unknown]
  - Deep vein thrombosis [Recovered/Resolved]
  - Hip arthroplasty [Unknown]
  - Decubitus ulcer [Unknown]
  - Somnolence [Unknown]
  - Oedema peripheral [Unknown]
  - White blood cells urine positive [Unknown]
  - Hiccups [Unknown]
  - Polyuria [Unknown]
  - Pain [Unknown]
  - Amnesia [Unknown]
  - Memory impairment [Unknown]
  - Mood swings [Unknown]
  - Constipation [Unknown]
  - Blood pressure increased [Unknown]
  - Fatigue [Unknown]
  - Asthenia [Unknown]
  - Blood creatinine increased [Unknown]
  - Lipids increased [Unknown]
  - Red blood cell sedimentation rate increased [Unknown]
  - Vitamin B12 increased [Unknown]
  - Blood triglycerides increased [Unknown]
  - Haemoglobin decreased [Unknown]
  - Osteoarthritis [Unknown]
  - Eating disorder [Unknown]

NARRATIVE: CASE EVENT DATE: 20210101
